FAERS Safety Report 5619250-1 (Version None)
Quarter: 2008Q1

REPORT INFORMATION
  Report Type: 
  Country: None (occurrence: None)
  Receive Date: 20080205
  Receipt Date: 20080124
  Transmission Date: 20080703
  Serious: Yes (Death)
  Sender: FDA-Public Use
  Company Number: L08-USA-00315-07

PATIENT
  Age: 54 Year
  Sex: Female

DRUGS (9)
  1. CITALOPRAM HYDROBROMIDE [Suspect]
  2. DOXEPIN HCL [Suspect]
  3. TRAZODONE HCL [Suspect]
  4. FLURAZEPAM [Suspect]
  5. ACETAMINOPHEN [Suspect]
  6. DULOXETINE [Suspect]
  7. FLUOXETINE [Suspect]
  8. MONTELUKAST SODIUM [Suspect]
  9. FENOFIBRATE [Suspect]

REACTIONS (2)
  - COMPLETED SUICIDE [None]
  - MULTIPLE DRUG OVERDOSE [None]
